FAERS Safety Report 8465046-5 (Version None)
Quarter: 2012Q2

REPORT INFORMATION
  Report Type: 
  Country: None (occurrence: None)
  Receive Date: 20120626
  Receipt Date: 20120618
  Transmission Date: 20120825
  Serious: Yes (Hospitalization)
  Sender: FDA-Public Use
  Company Number: FR-PFIZER INC-2012150746

PATIENT
  Age: 47 Year
  Sex: Female

DRUGS (4)
  1. CORDARONE [Suspect]
     Indication: ARRHYTHMIA
     Dosage: 200 MG, DAILY
     Route: 048
     Dates: start: 20120319
  2. FLECAINIDE ACETATE [Suspect]
     Dosage: 200 MG, DAILY
     Route: 048
     Dates: start: 20120323, end: 20120405
  3. PENTOXIFYLLINE [Suspect]
     Indication: THROMBOSIS PROPHYLAXIS
     Dosage: UNK
     Route: 048
     Dates: start: 20120316
  4. FLECAINIDE ACETATE [Suspect]
     Indication: ATRIAL FIBRILLATION
     Dosage: 150 MG, DAILY
     Route: 048
     Dates: start: 20120316, end: 20120322

REACTIONS (5)
  - LIVER INJURY [None]
  - GAIT DISTURBANCE [None]
  - COUGH [None]
  - ASTHENIA [None]
  - CHEST DISCOMFORT [None]
